FAERS Safety Report 8531137-3 (Version None)
Quarter: 2012Q3

REPORT INFORMATION
  Report Type: 
  Country: None (occurrence: None)
  Receive Date: 20120710
  Receipt Date: 20120626
  Transmission Date: 20120928
  Serious: Yes (Other)
  Sender: FDA-Public Use
  Company Number: 2011MA002697

PATIENT
  Sex: Male

DRUGS (27)
  1. AMBIEN [Concomitant]
  2. METFORMIN HYDROCHLORIDE [Concomitant]
  3. FLUTICASONE PROPIONATE [Concomitant]
  4. FEXOFENADINE [Concomitant]
  5. COZAAR [Concomitant]
  6. CEPHALEXIN [Concomitant]
  7. DOXAZOSIN MESYLATE [Concomitant]
  8. SERTRALINE HYDROCHLORIDE [Concomitant]
  9. PROAIR HFA [Concomitant]
  10. HUMULIN R [Concomitant]
  11. HYDROCODONE [Concomitant]
  12. CARVEDILOL [Concomitant]
  13. NITROGLYCERIN [Concomitant]
  14. ATROVENT [Concomitant]
  15. SIMVASTATIN [Concomitant]
  16. SUMATRIPTAN [Concomitant]
  17. ZOLPIDEM [Concomitant]
  18. PROMETHAZINE [Concomitant]
  19. IMITREX [Concomitant]
  20. TERAZOSIN HYDROCHLORIDE [Concomitant]
  21. MORPHINE SULFATE [Concomitant]
  22. METOCLOPRAMIDE [Suspect]
     Indication: PRODUCT USED FOR UNKNOWN INDICATION
     Dosage: 10 MG;QID;PO
     Route: 048
     Dates: start: 20080830, end: 20091230
  23. GABAPENTIN [Concomitant]
  24. PREVACID [Concomitant]
  25. LANSOPRAZOLE [Concomitant]
  26. DOXAZOSIN MESYLATE [Concomitant]
  27. LANTUS [Concomitant]

REACTIONS (10)
  - TREMOR [None]
  - ECONOMIC PROBLEM [None]
  - DYSTONIA [None]
  - FAMILY STRESS [None]
  - RESTLESS LEGS SYNDROME [None]
  - AKATHISIA [None]
  - EXTRAPYRAMIDAL DISORDER [None]
  - TARDIVE DYSKINESIA [None]
  - EMOTIONAL DISORDER [None]
  - INJURY [None]
